FAERS Safety Report 23485913 (Version 1)
Quarter: 2024Q1

REPORT INFORMATION
  Report Type: Spontaneous
  Country: GB (occurrence: GB)
  Receive Date: 20240206
  Receipt Date: 20240206
  Transmission Date: 20240410
  Serious: No
  Sender: FDA-Public Use
  Company Number: None

PATIENT
  Age: 64 Year
  Sex: Female
  Weight: 90 kg

DRUGS (5)
  1. EZETIMIBE [Suspect]
     Active Substance: EZETIMIBE
     Indication: Hypercholesterolaemia
     Dosage: UNK, OD (180 MILLIGRAM/10 MILLIGRAM) (TABLET)
     Route: 065
     Dates: start: 20220915, end: 20221027
  2. BISOPROLOL [Concomitant]
     Active Substance: BISOPROLOL\BISOPROLOL FUMARATE
     Indication: Atrial flutter
     Dosage: UNK
     Route: 065
  3. CODEINE [Concomitant]
     Active Substance: CODEINE
     Indication: Arthralgia
     Dosage: UNK
     Route: 065
  4. PROPANTHELINE [Concomitant]
     Active Substance: PROPANTHELINE
     Indication: Product used for unknown indication
     Dosage: UNK
     Route: 065
  5. RIVAROXABAN [Concomitant]
     Active Substance: RIVAROXABAN
     Indication: Atrial flutter
     Dosage: UNK
     Route: 065

REACTIONS (1)
  - Pruritus [Recovered/Resolved]
